FAERS Safety Report 4752496-3 (Version None)
Quarter: 2005Q3

REPORT INFORMATION
  Report Type: 
  Country: None (occurrence: None)
  Receive Date: 20050825
  Receipt Date: 20050817
  Transmission Date: 20060218
  Serious: Yes (Other)
  Sender: FDA-Public Use
  Company Number: US-ROCHE-414811

PATIENT
  Age: 41 Year
  Sex: Male
  Weight: 86.2 kg

DRUGS (10)
  1. PEGASYS [Suspect]
     Indication: HEPATITIS C
     Route: 058
     Dates: start: 20040820
  2. PEGASYS [Suspect]
     Route: 058
     Dates: start: 20050715
  3. COPEGUS [Suspect]
     Indication: HEPATITIS C
     Route: 048
     Dates: start: 20040820
  4. COPEGUS [Suspect]
     Route: 048
     Dates: start: 20050715
  5. NEURONTIN [Concomitant]
     Route: 048
  6. DEPAKOTE [Concomitant]
     Indication: BIPOLAR DISORDER
     Route: 048
  7. ABILIFY [Concomitant]
     Indication: BIPOLAR DISORDER
     Route: 048
  8. ZOLOFT [Concomitant]
     Indication: BIPOLAR DISORDER
     Dosage: IN THE MORNING.
     Route: 048
  9. SEROQUEL [Concomitant]
     Indication: BIPOLAR DISORDER
     Dosage: AT BEDTIME.
     Route: 048
  10. DESYREL [Concomitant]
     Indication: BIPOLAR DISORDER
     Dosage: AT BEDTIME.
     Route: 048

REACTIONS (4)
  - ASTHENIA [None]
  - CHOLECYSTECTOMY [None]
  - CHOLELITHIASIS [None]
  - JOINT STIFFNESS [None]
